FAERS Safety Report 26017770 (Version 1)
Quarter: 2025Q4

REPORT INFORMATION
  Report Type: Spontaneous
  Country: EU (occurrence: EU)
  Receive Date: 20251110
  Receipt Date: 20251110
  Transmission Date: 20260117
  Serious: Yes (Other)
  Sender: AMGEN
  Company Number: EU-SANDOZ-SDZ2025DE081618

PATIENT
  Age: 64 Year
  Sex: Female

DRUGS (4)
  1. DENOSUMAB [Suspect]
     Active Substance: DENOSUMAB
     Indication: Product used for unknown indication
     Dosage: UNK, QMO
     Route: 065
     Dates: start: 2004
  2. TAMOXIFEN CITRATE [Suspect]
     Active Substance: TAMOXIFEN CITRATE
     Indication: Product used for unknown indication
     Dosage: STRENGTH-20 MG
     Route: 065
     Dates: start: 2008, end: 2013
  3. LETROZOLE [Suspect]
     Active Substance: LETROZOLE
     Indication: Product used for unknown indication
     Dosage: UNK
     Route: 065
     Dates: start: 2004
  4. RIBOCICLIB [Suspect]
     Active Substance: RIBOCICLIB
     Indication: Product used for unknown indication
     Dosage: UNK, QMO
     Route: 065
     Dates: start: 2004

REACTIONS (4)
  - Spinal fusion surgery [Unknown]
  - Metastases to bone [Unknown]
  - Bone pain [Unknown]
  - Bone loss [Unknown]

NARRATIVE: CASE EVENT DATE: 20240101
